FAERS Safety Report 15464146 (Version 1)
Quarter: 2018Q4

REPORT INFORMATION
  Report Type: Spontaneous
  Country: FR (occurrence: FR)
  Receive Date: 20181004
  Receipt Date: 20181004
  Transmission Date: 20190204
  Serious: Yes (Other)
  Sender: FDA-Public Use
  Company Number: FR-ELI_LILLY_AND_COMPANY-FR201810001126

PATIENT
  Age: 33 Year
  Sex: Female

DRUGS (1)
  1. TALTZ [Suspect]
     Active Substance: IXEKIZUMAB
     Indication: PSORIASIS
     Dosage: 80 MG, UNKNOWN
     Route: 058
     Dates: start: 201805, end: 201807

REACTIONS (5)
  - Oropharyngeal pain [Recovered/Resolved]
  - Conjunctivitis [Recovered/Resolved]
  - Rash pustular [Recovered/Resolved]
  - Aphthous ulcer [Recovered/Resolved]
  - Mucosal dryness [Recovered/Resolved]

NARRATIVE: CASE EVENT DATE: 201805
